FAERS Safety Report 5876049-9 (Version None)
Quarter: 2008Q3

REPORT INFORMATION
  Report Type: 
  Country: None (occurrence: None)
  Receive Date: 20080908
  Receipt Date: 20080908
  Transmission Date: 20090109
  Serious: Yes (Other)
  Sender: FDA-Public Use
  Company Number: None

PATIENT
  Age: 53 Year
  Sex: Female
  Weight: 70.7611 kg

DRUGS (3)
  1. SERTRALINE HCL [Suspect]
     Indication: DEPRESSION
     Dosage: 50MG INCREASE TO 100 MG ONCE A DAY PO
     Route: 048
     Dates: start: 20080710, end: 20080819
  2. BENEDRIL [Concomitant]
  3. OTC CORTISONE CREAM [Concomitant]

REACTIONS (17)
  - CONFUSIONAL STATE [None]
  - DRUG WITHDRAWAL SYNDROME [None]
  - ERYTHEMA [None]
  - HOMICIDAL IDEATION [None]
  - HOSTILITY [None]
  - HYPERSOMNIA [None]
  - LOSS OF LIBIDO [None]
  - LUNG DISORDER [None]
  - MEMORY IMPAIRMENT [None]
  - MENTAL DISORDER [None]
  - MYODESOPSIA [None]
  - PHOTOPSIA [None]
  - PRODUCTIVE COUGH [None]
  - PRURITUS [None]
  - RASH PUSTULAR [None]
  - SUICIDAL IDEATION [None]
  - URTICARIA [None]
